FAERS Safety Report 17427551 (Version 3)
Quarter: 2020Q3

REPORT INFORMATION
  Report Type: Spontaneous
  Country: DE (occurrence: DE)
  Receive Date: 20200217
  Receipt Date: 20200722
  Transmission Date: 20201102
  Serious: Yes (Other)
  Sender: FDA-Public Use
  Company Number: DE-PFIZER INC-2020064405

PATIENT
  Age: 22 Year
  Sex: Female
  Weight: 50 kg

DRUGS (1)
  1. DEPO?CLINOVIR [Suspect]
     Active Substance: MEDROXYPROGESTERONE ACETATE
     Indication: MENORRHAGIA
     Dosage: UNK, DEPOT SYRINGE
     Route: 058
     Dates: start: 20200116

REACTIONS (8)
  - Nervousness [Unknown]
  - Off label use [Unknown]
  - Insomnia [Unknown]
  - Restlessness [Unknown]
  - Epilepsy [Recovering/Resolving]
  - Disease recurrence [Recovering/Resolving]
  - Incorrect route of product administration [Unknown]
  - Product use in unapproved indication [Unknown]

NARRATIVE: CASE EVENT DATE: 202001
